FAERS Safety Report 5423506-5 (Version None)
Quarter: 2007Q3

REPORT INFORMATION
  Report Type: 
  Country: None (occurrence: None)
  Receive Date: 20070727
  Receipt Date: 20070612
  Transmission Date: 20080115
  Serious: No
  Sender: FDA-Public Use
  Company Number: 264453

PATIENT
  Age: 57 Year
  Sex: Female

DRUGS (2)
  1. LEVEMIR [Suspect]
     Indication: TYPE 1 DIABETES MELLITUS
     Dosage: 22 IU,QD,  SUBCUTANEOUS
  2. HUMALOG [Suspect]
     Indication: TYPE 1 DIABETES MELLITUS
     Dosage: 14 IU, QD, SUBCUTANEOUS
     Route: 058

REACTIONS (2)
  - NO ADVERSE REACTION [None]
  - WRONG DRUG ADMINISTERED [None]
